FAERS Safety Report 5397367-7 (Version None)
Quarter: 2007Q3

REPORT INFORMATION
  Report Type: 
  Country: None (occurrence: None)
  Receive Date: 20070726
  Receipt Date: 20070723
  Transmission Date: 20080115
  Serious: Yes (Hospitalization)
  Sender: FDA-Public Use
  Company Number: PHEH2007US05325

PATIENT
  Age: 8 Year
  Sex: Male
  Weight: 40.5 kg

DRUGS (4)
  1. TRILEPTAL [Suspect]
     Indication: AFFECTIVE DISORDER
     Dosage: 300 MG QAM, 600 MG QPM, 900 MG QHS
     Dates: start: 20061001, end: 20070320
  2. ABILIFY [Concomitant]
     Indication: AFFECTIVE DISORDER
     Dosage: 15 MG, QHS
     Route: 048
     Dates: start: 20061001
  3. PULMICORT [Concomitant]
     Indication: ASTHMA
     Dosage: UNK, PRN
  4. XOPENEX [Concomitant]
     Indication: ASTHMA
     Dosage: UNK, PRN

REACTIONS (4)
  - ACCIDENTAL EXPOSURE [None]
  - ANTICONVULSANT DRUG LEVEL INCREASED [None]
  - CONVULSION [None]
  - HEADACHE [None]
